FAERS Safety Report 24837153 (Version 1)
Quarter: 2025Q1

REPORT INFORMATION
  Report Type: Spontaneous
  Country: US (occurrence: None)
  Receive Date: 20250110
  Receipt Date: 20250110
  Transmission Date: 20250409
  Serious: No
  Sender: FDA-CTU
  Company Number: None

PATIENT
  Sex: Female
  Weight: 51.75 kg

DRUGS (1)
  1. VENOFER [Suspect]
     Active Substance: IRON SUCROSE

REACTIONS (5)
  - Infusion related reaction [None]
  - Urticaria [None]
  - Middle insomnia [None]
  - Gastrointestinal disorder [None]
  - Throat tightness [None]

NARRATIVE: CASE EVENT DATE: 20241113
